FAERS Safety Report 17841900 (Version 1)
Quarter: 2020Q2

REPORT INFORMATION
  Report Type: Spontaneous
  Country: CN (occurrence: CN)
  Receive Date: 20200529
  Receipt Date: 20200529
  Transmission Date: 20200714
  Serious: Yes (Other)
  Sender: FDA-Public Use
  Company Number: CN-NOVOPROD-729962

PATIENT
  Age: 63 Year
  Sex: Female
  Weight: 54 kg

DRUGS (1)
  1. NOVORAPID [Suspect]
     Active Substance: INSULIN ASPART
     Indication: TYPE 2 DIABETES MELLITUS
     Dosage: 6 IU, TID
     Route: 058
     Dates: start: 20200508, end: 20200508

REACTIONS (7)
  - Abdominal pain [Recovering/Resolving]
  - Asthenia [Recovering/Resolving]
  - Nausea [Recovering/Resolving]
  - Blood glucose abnormal [Unknown]
  - Palpitations [Recovering/Resolving]
  - Mucosal haemorrhage [Recovering/Resolving]
  - Dizziness [Recovering/Resolving]

NARRATIVE: CASE EVENT DATE: 20200508
